FAERS Safety Report 5785953-1 (Version None)
Quarter: 2008Q2

REPORT INFORMATION
  Report Type: 
  Country: None (occurrence: None)
  Receive Date: 20080620
  Receipt Date: 20080620
  Transmission Date: 20081010
  Serious: Yes (Hospitalization)
  Sender: FDA-Public Use
  Company Number: None

PATIENT
  Age: 28 Year
  Sex: Female
  Weight: 49.8957 kg

DRUGS (1)
  1. LAMICTAL [Suspect]
     Indication: BIPOLAR DISORDER
     Dosage: 25-50MG DAILY PO
     Route: 048
     Dates: start: 20080202, end: 20080223

REACTIONS (2)
  - MOUTH ULCERATION [None]
  - STEVENS-JOHNSON SYNDROME [None]
